FAERS Safety Report 26074974 (Version 1)
Quarter: 2025Q4

REPORT INFORMATION
  Report Type: Spontaneous
  Country: PR (occurrence: None)
  Receive Date: 20251120
  Receipt Date: 20251120
  Transmission Date: 20260117
  Serious: Yes (Other)
  Sender: FDA-CTU
  Company Number: None

PATIENT
  Age: 28 Year
  Sex: Male
  Weight: 78.47 kg

DRUGS (2)
  1. ENTYVIO [Suspect]
     Active Substance: VEDOLIZUMAB
  2. Lexapro Oral [Concomitant]

REACTIONS (5)
  - Abdominal pain [None]
  - Testicular pain [None]
  - Insomnia [None]
  - Nasal congestion [None]
  - Therapy cessation [None]

NARRATIVE: CASE EVENT DATE: 20251120
